FAERS Safety Report 6121699-8 (Version None)
Quarter: 2009Q1

REPORT INFORMATION
  Report Type: 
  Country: None (occurrence: None)
  Receive Date: 20090317
  Receipt Date: 20090311
  Transmission Date: 20090719
  Serious: Yes (Death)
  Sender: FDA-Public Use
  Company Number: RU-ROCHE-621144

PATIENT
  Sex: Male
  Weight: 65 kg

DRUGS (2)
  1. RIBAVIRIN [Suspect]
     Dosage: DOSE REPORTED AS 1000 MG DAILY,  DATE OF LAST DOSE PRIOR TO SAE: 26 FEB 2009
     Route: 048
     Dates: start: 20081202
  2. PEG-INTERFERON ALFA 2A (RO 25-8310) [Suspect]
     Dosage: DOSE REPORTED 180 MKG WEEKLY DATE OF LAST DOSE PRIOR TO SAE: 24 FEB 2009
     Route: 058
     Dates: start: 20081202

REACTIONS (1)
  - MYOCARDIAL INFARCTION [None]
